FAERS Safety Report 21600647 (Version 2)
Quarter: 2022Q4

REPORT INFORMATION
  Report Type: Report from Study
  Country: US (occurrence: US)
  Receive Date: 20221116
  Receipt Date: 20221121
  Transmission Date: 20230113
  Serious: Yes (Death, Hospitalization, Other)
  Sender: FDA-Public Use
  Company Number: US-BRISTOL-MYERS SQUIBB COMPANY-2022-058858

PATIENT
  Age: 74 Year
  Sex: Male
  Weight: 85 kg

DRUGS (4)
  1. NIVOLUMAB [Suspect]
     Active Substance: NIVOLUMAB
     Indication: Bladder cancer
     Dosage: (DAY 1 OF CYCLES 1-4)?PATIENT RECEIVED C4D1 AS PLANNED ON 6/1/2022.
     Route: 042
     Dates: start: 20220401, end: 20220511
  2. IPILIMUMAB [Suspect]
     Active Substance: IPILIMUMAB
     Indication: Bladder cancer
     Dosage: 1 MG/KG (DAY 1 OF CYCLE 1-4). ?PATIENT RECEIVED C4D1 INFUSION AS PLANNED ON 6/1/2022.
     Route: 042
     Dates: start: 20220401
  3. CABOZANTINIB [Suspect]
     Active Substance: CABOZANTINIB
     Indication: Bladder cancer
     Route: 048
     Dates: start: 20220512, end: 20220525
  4. CABOZANTINIB [Suspect]
     Active Substance: CABOZANTINIB
     Route: 048
     Dates: start: 20220401, end: 20220414

REACTIONS (3)
  - Fatigue [Recovering/Resolving]
  - Chronic kidney disease [Unknown]
  - Sepsis [Fatal]

NARRATIVE: CASE EVENT DATE: 20220527
